FAERS Safety Report 21721434 (Version 1)
Quarter: 2022Q4

REPORT INFORMATION
  Report Type: Spontaneous
  Country: US (occurrence: US)
  Receive Date: 20221213
  Receipt Date: 20221213
  Transmission Date: 20230113
  Serious: No
  Sender: FDA-Public Use
  Company Number: US-LUPIN PHARMACEUTICALS INC.-2022-14205

PATIENT

DRUGS (1)
  1. ALBUTEROL SULFATE [Suspect]
     Active Substance: ALBUTEROL SULFATE
     Indication: Asthma
     Dosage: UNK

REACTIONS (6)
  - Wrong technique in product usage process [Unknown]
  - Device failure [Unknown]
  - Drug dose omission by device [Unknown]
  - Expired product administered [Unknown]
  - Device delivery system issue [Unknown]
  - No adverse event [Unknown]
